FAERS Safety Report 9087609 (Version 1)
Quarter: 2013Q1

REPORT INFORMATION
  Report Type: Spontaneous
  Country: BR (occurrence: BR)
  Receive Date: 20130131
  Receipt Date: 20130131
  Transmission Date: 20140127
  Serious: Yes (Hospitalization)
  Sender: FDA-Public Use
  Company Number: BR-PFIZER INC-2013032280

PATIENT
  Age: 73 Year
  Sex: Female
  Weight: 56 kg

DRUGS (3)
  1. FRONTAL [Suspect]
     Indication: SLEEP DISORDER
     Dosage: 1 MG, 1X/DAY
     Route: 048
     Dates: start: 201211
  2. SIMVASTATIN [Concomitant]
     Indication: BLOOD CHOLESTEROL
     Dosage: UNK
  3. LABIRIN [Concomitant]
     Indication: LABYRINTHITIS
     Dosage: UNK
     Dates: start: 20121227

REACTIONS (4)
  - Labyrinthitis [Unknown]
  - Dizziness [Unknown]
  - Diarrhoea [Unknown]
  - Vomiting [Unknown]
